FAERS Safety Report 19722671 (Version 1)
Quarter: 2021Q3

REPORT INFORMATION
  Report Type: Report from Study
  Country: EC (occurrence: EC)
  Receive Date: 20210819
  Receipt Date: 20210819
  Transmission Date: 20211014
  Serious: Yes (Hospitalization, Other)
  Sender: FDA-Public Use
  Company Number: ES-VIIV HEALTHCARE LIMITED-ES2021GSK170090

PATIENT
  Sex: Female

DRUGS (4)
  1. ZIDOVUDINE. [Suspect]
     Active Substance: ZIDOVUDINE
     Indication: HIV INFECTION
     Dosage: UNK
     Dates: start: 2007
  2. ITRACONAZOLE. [Suspect]
     Active Substance: ITRACONAZOLE
     Indication: ANTIFUNGAL TREATMENT
     Dosage: UNK
     Dates: start: 2007
  3. LAMIVUDINE. [Suspect]
     Active Substance: LAMIVUDINE
     Indication: HIV INFECTION
     Dosage: UNK
     Dates: start: 2007
  4. LOPINAVIR+RITONAVIR [Suspect]
     Active Substance: LOPINAVIR\RITONAVIR
     Indication: HIV INFECTION
     Dosage: UNK
     Dates: start: 2007

REACTIONS (12)
  - Splenomegaly [Unknown]
  - Anaemia [Unknown]
  - Thrombocytopenia [Unknown]
  - Histoplasmosis disseminated [Unknown]
  - Disease recurrence [Unknown]
  - Pyrexia [Unknown]
  - Hepatomegaly [Unknown]
  - Pancytopenia [Unknown]
  - Leukopenia [Unknown]
  - Treatment noncompliance [Unknown]
  - Rash vesicular [Unknown]
  - Virologic failure [Unknown]
